FAERS Safety Report 17441207 (Version 2)
Quarter: 2020Q4

REPORT INFORMATION
  Report Type: Spontaneous
  Country: US (occurrence: US)
  Receive Date: 20200220
  Receipt Date: 20201030
  Transmission Date: 20210113
  Serious: Yes (Disabling)
  Sender: FDA-Public Use
  Company Number: US-TEVA-2020-US-1188182

PATIENT
  Age: 73 Year
  Sex: Female

DRUGS (21)
  1. DOCETAXEL. [Suspect]
     Active Substance: DOCETAXEL
     Indication: BREAST CANCER FEMALE
     Dosage: DOSAGE: UNKNOWN; NUMBER OF CYCLES: 04; EVERY TWO WEEKS
     Route: 065
     Dates: start: 20140829, end: 20141031
  2. SIMVASTATIN. [Concomitant]
     Active Substance: SIMVASTATIN
  3. PLAVIX [Concomitant]
     Active Substance: CLOPIDOGREL BISULFATE
     Dates: end: 2019
  4. STRONTIUM [Concomitant]
     Active Substance: STRONTIUM
  5. LOSARTAN. [Concomitant]
     Active Substance: LOSARTAN
     Dates: start: 2011
  6. LOPID [Concomitant]
     Active Substance: GEMFIBROZIL
     Dates: end: 2019
  7. IMDUR [Concomitant]
     Active Substance: ISOSORBIDE MONONITRATE
     Dates: end: 201705
  8. CALCIUM [Concomitant]
     Active Substance: CALCIUM
  9. METOPROLOL. [Concomitant]
     Active Substance: METOPROLOL
  10. NITROSTATE [Concomitant]
     Dosage: PRN
  11. UBIQUINOL (COQID) [Concomitant]
  12. CYTOXAN [Concomitant]
     Active Substance: CYCLOPHOSPHAMIDE
  13. HYDROCHLOROTHIAZIDE. [Concomitant]
     Active Substance: HYDROCHLOROTHIAZIDE
     Dates: start: 2012, end: 201911
  14. ASPIRIN. [Concomitant]
     Active Substance: ASPIRIN
     Dates: start: 2012, end: 2018
  15. CRESTOR [Concomitant]
     Active Substance: ROSUVASTATIN CALCIUM
     Dates: end: 2010
  16. ARIMIDEX [Concomitant]
     Active Substance: ANASTROZOLE
     Dates: end: 201701
  17. EXEMESTANE. [Concomitant]
     Active Substance: EXEMESTANE
     Dates: start: 2017, end: 2019
  18. HYDRALAZINE [Concomitant]
     Active Substance: HYDRALAZINE HYDROCHLORIDE
  19. METRONIDAZOLE 15% CREAM [Concomitant]
  20. VITAMIN D3 [Concomitant]
     Active Substance: CHOLECALCIFEROL
  21. PRAVASTATIN. [Concomitant]
     Active Substance: PRAVASTATIN
     Dates: start: 2019, end: 2019

REACTIONS (4)
  - Alopecia [Not Recovered/Not Resolved]
  - Madarosis [Not Recovered/Not Resolved]
  - Hair colour changes [Not Recovered/Not Resolved]
  - Hair texture abnormal [Not Recovered/Not Resolved]

NARRATIVE: CASE EVENT DATE: 2014
